FAERS Safety Report 17517278 (Version 1)
Quarter: 2020Q1

REPORT INFORMATION
  Report Type: Spontaneous
  Country: TR (occurrence: TR)
  Receive Date: 20200309
  Receipt Date: 20200309
  Transmission Date: 20200409
  Serious: Yes (Death, Hospitalization, Other)
  Sender: FDA-Public Use
  Company Number: TR-TASMAN PHARMA, INC.-2020TSM00088

PATIENT
  Age: 29 Year
  Sex: Male

DRUGS (1)
  1. CLOZAPINE. [Suspect]
     Active Substance: CLOZAPINE
     Indication: SCHIZOPHRENIA
     Dosage: ^2X100MG^
     Route: 065

REACTIONS (5)
  - Septic shock [Fatal]
  - Intestinal pseudo-obstruction [Fatal]
  - Metabolic acidosis [Unknown]
  - Intestinal ischaemia [Fatal]
  - Cardiac arrest [Fatal]
